FAERS Safety Report 7374728-8 (Version None)
Quarter: 2011Q1

REPORT INFORMATION
  Report Type: 
  Country: None (occurrence: None)
  Receive Date: 20110325
  Receipt Date: 20100908
  Transmission Date: 20110831
  Serious: No
  Sender: FDA-Public Use
  Company Number: US-MYLANLABS-2010S1016552

PATIENT
  Age: 59 Year
  Sex: Male
  Weight: 63.5 kg

DRUGS (6)
  1. KLONOPIN [Concomitant]
     Indication: PANIC DISORDER
  2. MELOXICAM [Concomitant]
  3. OXYCODONE [Concomitant]
  4. FENTANYL-100 [Suspect]
     Indication: HERNIA
     Dosage: Q72H
     Route: 062
     Dates: start: 20080101
  5. FENTANYL-100 [Suspect]
     Indication: EXOSTOSIS
     Dosage: Q72H
     Route: 062
     Dates: start: 20080101
  6. FENTANYL-100 [Suspect]
     Indication: INTERVERTEBRAL DISC PROTRUSION
     Dosage: Q72H
     Route: 062
     Dates: start: 20080101

REACTIONS (3)
  - DRUG WITHDRAWAL SYNDROME [None]
  - NIGHT SWEATS [None]
  - DRUG EFFECT DECREASED [None]
